FAERS Safety Report 6351243-1 (Version None)
Quarter: 2009Q3

REPORT INFORMATION
  Report Type: 
  Country: None (occurrence: None)
  Receive Date: 20090912
  Receipt Date: 20090622
  Transmission Date: 20100115
  Serious: No
  Sender: FDA-Public Use
  Company Number: US-ABBOTT-07P-163-0377203-00

PATIENT
  Sex: Female
  Weight: 59.02 kg

DRUGS (9)
  1. HUMIRA [Suspect]
     Indication: COLITIS ULCERATIVE
     Route: 058
     Dates: start: 20070802
  2. HUMIRA [Suspect]
     Route: 058
     Dates: start: 20070802
  3. HUMIRA [Suspect]
     Route: 058
     Dates: start: 20070802
  4. ASULFADINE [Concomitant]
     Indication: DRUG USE FOR UNKNOWN INDICATION
  5. CENASA SUPPOSITORIES [Concomitant]
     Indication: DRUG USE FOR UNKNOWN INDICATION
  6. IRON [Concomitant]
     Indication: DRUG USE FOR UNKNOWN INDICATION
     Route: 050
  7. FOLIC ACID [Concomitant]
     Indication: DRUG USE FOR UNKNOWN INDICATION
  8. ALENDRONATE SODIUM [Concomitant]
     Indication: DRUG USE FOR UNKNOWN INDICATION
  9. LANSOPRAZOLE [Concomitant]
     Indication: DRUG USE FOR UNKNOWN INDICATION

REACTIONS (2)
  - INCORRECT DOSE ADMINISTERED [None]
  - INJECTION SITE HAEMATOMA [None]
